FAERS Safety Report 16431731 (Version 1)
Quarter: 2019Q3

REPORT INFORMATION
  Report Type: Spontaneous
  Country: US (occurrence: US)
  Receive Date: 20190613
  Receipt Date: 20190613
  Transmission Date: 20191004
  Serious: Yes (Other)
  Sender: FDA-Public Use
  Company Number: None

PATIENT
  Age: 88 Year
  Sex: Male
  Weight: 73 kg

DRUGS (7)
  1. CAPECITABINE. [Suspect]
     Active Substance: CAPECITABINE
     Dates: start: 20181112, end: 20181203
  2. COQ 10 [Concomitant]
     Active Substance: UBIDECARENONE
  3. LYSINE [Concomitant]
     Active Substance: LYSINE
  4. HORSE CHESTNUT [Concomitant]
     Active Substance: HORSE CHESTNUT
  5. LUTEIN [Concomitant]
     Active Substance: LUTEIN
  6. BILBERRY [Concomitant]
     Active Substance: BILBERRY
  7. ASTRAGALUS [Concomitant]

REACTIONS (1)
  - Palmar-plantar erythrodysaesthesia syndrome [None]

NARRATIVE: CASE EVENT DATE: 20181203
